FAERS Safety Report 21301875 (Version 1)
Quarter: 2022Q3

REPORT INFORMATION
  Report Type: Spontaneous
  Country: GR (occurrence: GR)
  Receive Date: 20220907
  Receipt Date: 20220907
  Transmission Date: 20221026
  Serious: Yes (Other)
  Sender: FDA-Public Use
  Company Number: GR-MYLANLABS-2022M1090454

PATIENT
  Age: 36 Day
  Sex: Male

DRUGS (4)
  1. VANCOMYCIN [Suspect]
     Active Substance: VANCOMYCIN
     Indication: Bacteraemia
     Dosage: 40 MILLIGRAM/KILOGRAM, QD, 200 MILLIGRAM/KILOGRAM, QD, 30TH HOUR OF HOSPITALIZATION
     Route: 042
  2. CEFOTAXIME [Suspect]
     Active Substance: CEFOTAXIME SODIUM
     Indication: Bacteraemia
     Dosage: 150 MILLIGRAM/KILOGRAM, QD, INITIALLY
     Route: 042
  3. CEFOTAXIME [Suspect]
     Active Substance: CEFOTAXIME SODIUM
     Dosage: 200 MILLIGRAM/KILOGRAM, QD, 30TH HOUR OF HOSPITALIZATION, CONTINUED FOR 7 DAYS
     Route: 042
  4. AMIKACIN [Suspect]
     Active Substance: AMIKACIN
     Indication: Bacteraemia
     Dosage: 15 MILLIGRAM/KILOGRAM, QD, INITIALLY, DISCONTINUED AT 30TH HOUR OF HOSPITALIZATION
     Route: 042

REACTIONS (1)
  - Palmar-plantar erythrodysaesthesia syndrome [Recovered/Resolved]
